FAERS Safety Report 16617239 (Version 3)
Quarter: 2019Q3

REPORT INFORMATION
  Report Type: Spontaneous
  Country: JP (occurrence: JP)
  Receive Date: 20190723
  Receipt Date: 20190918
  Transmission Date: 20191004
  Serious: Yes (Hospitalization)
  Sender: FDA-Public Use
  Company Number: JP-JNJFOC-20190719455

PATIENT
  Age: 71 Year
  Sex: Female

DRUGS (1)
  1. SIMPONI [Suspect]
     Active Substance: GOLIMUMAB
     Indication: RHEUMATOID ARTHRITIS
     Dosage: UNKNOWN
     Route: 058

REACTIONS (2)
  - Fall [Unknown]
  - Back pain [Unknown]

NARRATIVE: CASE EVENT DATE: 20190618
